FAERS Safety Report 8484707-5 (Version None)
Quarter: 2012Q3

REPORT INFORMATION
  Report Type: 
  Country: None (occurrence: None)
  Receive Date: 20120703
  Receipt Date: 20120508
  Transmission Date: 20120928
  Serious: No
  Sender: FDA-Public Use
  Company Number: US-TEVA-337407USA

PATIENT
  Sex: Female
  Weight: 90.8 kg

DRUGS (12)
  1. NUVIGIL [Suspect]
     Dosage: 250 MILLIGRAM;
     Route: 048
  2. PRIMIDONE [Concomitant]
     Indication: TREMOR
     Route: 048
  3. SELEGILINE [Concomitant]
     Indication: TREMOR
     Route: 048
  4. MODAFINIL [Suspect]
     Indication: SLEEP APNOEA SYNDROME
     Dosage: 200 MILLIGRAM;
     Route: 048
  5. MONTELUKAST [Concomitant]
     Indication: HYPERSENSITIVITY
     Dosage: 10 MILLIGRAM;
     Route: 048
  6. FENOFIBRATE [Concomitant]
     Indication: BLOOD CHOLESTEROL
     Dosage: 60 MILLIGRAM;
     Route: 048
  7. STEROID ANTIBACTERIALS [Concomitant]
     Indication: INFECTION
     Dates: start: 20120501
  8. PAROXETINE HCL [Concomitant]
     Indication: ANXIETY
     Dosage: 20 MILLIGRAM;
     Route: 048
  9. SIMVASTATIN [Concomitant]
     Indication: BLOOD CHOLESTEROL
     Dosage: 40 MILLIGRAM;
     Route: 048
  10. MELOXICAM [Concomitant]
     Indication: EXOSTOSIS
     Route: 048
  11. CEPHALEXIN [Concomitant]
     Indication: INFECTION
     Route: 048
     Dates: start: 20120501
  12. ARIPIPRAZOLE [Concomitant]
     Indication: DEPRESSION
     Route: 048

REACTIONS (2)
  - CONJUNCTIVITIS INFECTIVE [None]
  - RASH [None]
